FAERS Safety Report 7926968-4 (Version None)
Quarter: 2011Q4

REPORT INFORMATION
  Report Type: 
  Country: None (occurrence: None)
  Receive Date: 20111118
  Receipt Date: 20111110
  Transmission Date: 20120403
  Serious: Yes (Other)
  Sender: FDA-Public Use
  Company Number: US-JNJFOC-20111002620

PATIENT
  Sex: Female
  Weight: 70.31 kg

DRUGS (15)
  1. DURAGESIC-100 [Suspect]
     Route: 062
     Dates: start: 20100101
  2. BENAZEPRIL HYDROCHLORIDE [Concomitant]
     Indication: BLOOD PRESSURE
     Dosage: IN AM
     Route: 048
  3. SYNTHROID [Concomitant]
     Indication: THYROID DISORDER
     Route: 048
     Dates: start: 19840101
  4. XANAX [Concomitant]
     Indication: POST-TRAUMATIC STRESS DISORDER
     Dosage: AT BEDTIME
     Route: 048
     Dates: start: 20090101
  5. SINGULAIR [Concomitant]
     Indication: MULTIPLE ALLERGIES
     Route: 048
  6. DURAGESIC-100 [Suspect]
     Route: 062
     Dates: start: 20110101, end: 20110101
  7. EFFEXOR [Concomitant]
     Indication: DEPRESSION
     Dosage: EVERY OTHER NIGHT
     Route: 048
     Dates: start: 20090101
  8. FLONASE [Concomitant]
     Indication: MULTIPLE ALLERGIES
     Dosage: 2 SPRAY S EACH NOSTRIL DAILY OR TWICE A DAY AS NEEDED
     Route: 065
  9. DURAGESIC-100 [Suspect]
     Route: 062
     Dates: start: 20110101
  10. DURAGESIC-100 [Suspect]
     Route: 062
     Dates: start: 20110101, end: 20110101
  11. DURAGESIC-100 [Suspect]
     Indication: BACK PAIN
     Route: 062
     Dates: start: 20110101, end: 20110101
  12. VITAMINS NOS [Concomitant]
     Indication: NUTRITIONAL SUPPORT
     Route: 048
  13. CLARITIN [Concomitant]
     Indication: MULTIPLE ALLERGIES
     Route: 048
  14. LEVOCARB [Concomitant]
     Indication: PERIODIC LIMB MOVEMENT DISORDER
     Dosage: 25/100 MG
     Route: 048
     Dates: start: 20101201
  15. LYRICA [Concomitant]
     Indication: FIBROMYALGIA
     Route: 048
     Dates: start: 20090101

REACTIONS (8)
  - BACK PAIN [None]
  - LUMBAR SPINAL STENOSIS [None]
  - SOMNOLENCE [None]
  - INSOMNIA [None]
  - DRUG INEFFECTIVE [None]
  - ADVERSE EVENT [None]
  - INFLAMMATION [None]
  - EXERCISE TOLERANCE DECREASED [None]
